FAERS Safety Report 15326310 (Version 1)
Quarter: 2018Q3

REPORT INFORMATION
  Report Type: Spontaneous
  Country: US (occurrence: US)
  Receive Date: 20180828
  Receipt Date: 20180828
  Transmission Date: 20181010
  Serious: Yes (Other)
  Sender: FDA-Public Use
  Company Number: US-SA-2017SA252856

PATIENT
  Age: 60 Year
  Sex: Female
  Weight: 85.72 kg

DRUGS (9)
  1. TAXOTERE [Suspect]
     Active Substance: DOCETAXEL
     Dosage: 154 MG,Q3W
     Dates: start: 20120515, end: 20120515
  2. TAXOTERE [Suspect]
     Active Substance: DOCETAXEL
     Indication: INVASIVE DUCTAL BREAST CARCINOMA
     Dosage: 158 MG,Q3W
     Route: 042
     Dates: start: 20120403, end: 20120403
  3. CLONIDINE. [Concomitant]
     Active Substance: CLONIDINE
     Dosage: UNK UNK,UNK
     Route: 065
     Dates: start: 1998
  4. TAXOTERE [Suspect]
     Active Substance: DOCETAXEL
     Dosage: 152 MG,Q3W
     Route: 042
     Dates: start: 20120612, end: 20120612
  5. TAXOTERE [Suspect]
     Active Substance: DOCETAXEL
     Dosage: 156 MG,Q3W
     Route: 042
     Dates: start: 20120424, end: 20120424
  6. TAXOTERE [Suspect]
     Active Substance: DOCETAXEL
     Dosage: 152 MG,Q3W
     Route: 042
     Dates: start: 20120824, end: 20120824
  7. PARAPLATIN [Concomitant]
     Active Substance: CARBOPLATIN
     Route: 065
  8. VERAPAMIL [Concomitant]
     Active Substance: VERAPAMIL HYDROCHLORIDE
     Dosage: UNK UNK,UNK
     Route: 065
     Dates: start: 1998
  9. TAXOTERE [Suspect]
     Active Substance: DOCETAXEL
     Dosage: 152 MG,Q3W
     Route: 042
     Dates: start: 20120724, end: 20120724

REACTIONS (2)
  - Psychological trauma [Unknown]
  - Alopecia [Recovering/Resolving]

NARRATIVE: CASE EVENT DATE: 20130124
